FAERS Safety Report 10659990 (Version 1)
Quarter: 2014Q4

REPORT INFORMATION
  Report Type: Spontaneous
  Country: US (occurrence: US)
  Receive Date: 20141217
  Receipt Date: 20141217
  Transmission Date: 20150529
  Serious: No
  Sender: FDA-Public Use
  Company Number: US-GLAXOSMITHKLINE-A1077703A

PATIENT

DRUGS (11)
  1. MARINOL [Concomitant]
     Active Substance: DRONABINOL
  2. VOTRIENT [Suspect]
     Active Substance: PAZOPANIB HYDROCHLORIDE
     Indication: RENAL CELL CARCINOMA
     Route: 048
     Dates: start: 20140409
  3. NORVASC [Concomitant]
     Active Substance: AMLODIPINE BESYLATE
     Indication: HYPERTENSION
  4. PRILOSEC [Concomitant]
     Active Substance: OMEPRAZOLE MAGNESIUM
  5. IRON TABLETS [Concomitant]
  6. HCTZ [Concomitant]
     Active Substance: HYDROCHLOROTHIAZIDE
  7. ZOFRAN [Concomitant]
     Active Substance: ONDANSETRON HYDROCHLORIDE
  8. OXYCONTIN [Concomitant]
     Active Substance: OXYCODONE HYDROCHLORIDE
  9. OXYCODONE [Concomitant]
     Active Substance: OXYCODONE
  10. XANAX [Concomitant]
     Active Substance: ALPRAZOLAM
  11. VITAMIN C [Concomitant]
     Active Substance: ASCORBIC ACID

REACTIONS (5)
  - Hypertension [Not Recovered/Not Resolved]
  - Alopecia [Unknown]
  - Hair disorder [Not Recovered/Not Resolved]
  - Hair colour changes [Not Recovered/Not Resolved]
  - Functional gastrointestinal disorder [Unknown]

NARRATIVE: CASE EVENT DATE: 20140423
